FAERS Safety Report 23500333 (Version 3)
Quarter: 2024Q1

REPORT INFORMATION
  Report Type: Spontaneous
  Country: BG (occurrence: BG)
  Receive Date: 20240208
  Receipt Date: 20240226
  Transmission Date: 20240409
  Serious: Yes (Hospitalization, Other)
  Sender: FDA-Public Use
  Company Number: BG-Accord-404546

PATIENT
  Age: 52 Year
  Sex: Male

DRUGS (8)
  1. AMLODIPINE [Suspect]
     Active Substance: AMLODIPINE BESYLATE
     Indication: Hypertension
     Dosage: 2X5MG
     Dates: start: 2021, end: 20230331
  2. HYDROCHLOROTHIAZIDE [Suspect]
     Active Substance: HYDROCHLOROTHIAZIDE
     Indication: Hypertension
     Dosage: HALF TABLET OF 25MG EVERY OTHER DAY
     Dates: start: 20230401
  3. VALSARTAN [Suspect]
     Active Substance: VALSARTAN
     Indication: Hypertension
     Dosage: 1X160MG
     Dates: start: 20230401
  4. RILMENIDINE PHOSPHATE [Suspect]
     Active Substance: RILMENIDINE PHOSPHATE
     Indication: Hypertension
     Dosage: 1X1MG
     Dates: start: 20230401
  5. MOXONIDINE [Suspect]
     Active Substance: MOXONIDINE
     Indication: Hypertension
     Dosage: 1X0.2MG
     Dates: start: 2021, end: 20230331
  6. RANITIDINE [Suspect]
     Active Substance: RANITIDINE
     Indication: Duodenal ulcer
  7. HYDROCHLOROTHIAZIDE [Suspect]
     Active Substance: HYDROCHLOROTHIAZIDE
     Indication: Hypertension
     Dosage: HALF TABLET OF 25MG EVERY OTHER DAY
     Dates: start: 2021, end: 20230331
  8. RANITIDINE [Suspect]
     Active Substance: RANITIDINE
     Indication: Gastritis

REACTIONS (3)
  - Superficial spreading melanoma stage I [Recovering/Resolving]
  - Manufacturing materials contamination [Recovering/Resolving]
  - Dysplastic naevus [Recovering/Resolving]

NARRATIVE: CASE EVENT DATE: 20220101
